FAERS Safety Report 11082891 (Version 2)
Quarter: 2016Q2

REPORT INFORMATION
  Report Type: Report from Study
  Country: US (occurrence: US)
  Receive Date: 20150501
  Receipt Date: 20160414
  Transmission Date: 20160815
  Serious: No
  Sender: FDA-Public Use
  Company Number: US-ABBVIE-15P-163-1343443-00

PATIENT
  Sex: Female

DRUGS (2)
  1. ANDROGEL [Suspect]
     Active Substance: TESTOSTERONE
     Indication: HORMONE REPLACEMENT THERAPY
     Dosage: 5 PUMPS/DAY OR AS DIRECTED
     Route: 061
     Dates: start: 20150130
  2. CLONAZEPAM. [Concomitant]
     Active Substance: CLONAZEPAM
     Indication: PRODUCT USED FOR UNKNOWN INDICATION

REACTIONS (4)
  - Breast enlargement [Unknown]
  - Headache [Unknown]
  - Insomnia [Unknown]
  - Blood pressure increased [Unknown]
